FAERS Safety Report 18061217 (Version 1)
Quarter: 2020Q3

REPORT INFORMATION
  Report Type: Spontaneous
  Country: US (occurrence: US)
  Receive Date: 20200723
  Receipt Date: 20200723
  Transmission Date: 20201103
  Serious: No
  Sender: FDA-Public Use
  Company Number: US-JNJFOC-20200727732

PATIENT
  Sex: Female

DRUGS (1)
  1. WOMENS ROGAINE UNSCENTED [Suspect]
     Active Substance: MINOXIDIL
     Indication: PRODUCT USED FOR UNKNOWN INDICATION
     Dosage: PRODUCT LAST ADMINISTERED ON 15?JUL?2020
     Route: 061
     Dates: start: 20200715

REACTIONS (1)
  - Application site perspiration [Not Recovered/Not Resolved]

NARRATIVE: CASE EVENT DATE: 20200715
